FAERS Safety Report 7641236-6 (Version None)
Quarter: 2011Q3

REPORT INFORMATION
  Report Type: 
  Country: None (occurrence: None)
  Receive Date: 20110728
  Receipt Date: 20110726
  Transmission Date: 20111222
  Serious: Yes (Death, Other)
  Sender: FDA-Public Use
  Company Number: PHHY2011NZ53035

PATIENT
  Sex: Male

DRUGS (7)
  1. CLOZAPINE [Suspect]
     Indication: SCHIZOPHRENIA
     Dosage: 25 MG, 1/2 MANE 21/2 NOCTE
     Route: 048
     Dates: start: 19930311
  2. COLECALCIFEROL [Concomitant]
     Dosage: 125 MG, UNK
  3. OMEPRAZOLE [Concomitant]
     Dosage: 20 MG, UNK
  4. MOVIPREP [Concomitant]
  5. BENDROFLUAZIDE [Concomitant]
     Dosage: 2.5 MG, UNK
  6. CETIRIZINE HCL [Concomitant]
     Dosage: 10 MG, UNK
  7. METOPROLOL TARTRATE [Concomitant]
     Dosage: 95 MG, UNK

REACTIONS (3)
  - TREMOR [None]
  - DEMENTIA ALZHEIMER'S TYPE [None]
  - TONGUE PARALYSIS [None]
